FAERS Safety Report 7624091-X (Version None)
Quarter: 2011Q3

REPORT INFORMATION
  Report Type: 
  Country: None (occurrence: None)
  Receive Date: 20110720
  Receipt Date: 20110708
  Transmission Date: 20111222
  Serious: Yes (Hospitalization)
  Sender: FDA-Public Use
  Company Number: PHHY2011JP52680

PATIENT
  Sex: Female
  Weight: 42 kg

DRUGS (18)
  1. FAMVIR [Suspect]
     Dosage: 250 MG, UNK
     Route: 048
     Dates: start: 20110603
  2. FENAZOL [Concomitant]
     Dosage: UNK
     Route: 061
     Dates: start: 20110531
  3. NIKORANMART [Concomitant]
     Dosage: 15 MG, QD
     Route: 048
  4. AMLODIPIN OD [Concomitant]
     Dosage: 5 MG, QD
     Route: 048
  5. LOBU [Concomitant]
     Dosage: 180 MG, QD
     Route: 048
     Dates: start: 20110531, end: 20110601
  6. MUCOSTA [Concomitant]
     Dosage: 300 MG, QD
     Route: 048
  7. OLOPATADINE HCL [Concomitant]
     Dosage: 10 MG, QD
     Route: 048
     Dates: start: 20110531, end: 20110601
  8. FAMOTIDINE D [Concomitant]
     Dosage: 10 MG, UNK
     Route: 048
  9. TICLOPIDINE HCL [Concomitant]
     Dosage: 200 MG, QD
     Route: 048
  10. MAGNESIUM SULFATE [Concomitant]
  11. ALFAROL [Concomitant]
     Dosage: 0.25 UG, QD
     Route: 048
  12. FAMVIR [Suspect]
     Indication: HERPES ZOSTER
     Dosage: 500 MG, TID
     Route: 048
     Dates: start: 20110531, end: 20110601
  13. RENAGEL [Concomitant]
     Dosage: 500 MG, QD
     Route: 048
  14. MEXITIL [Concomitant]
     Dosage: 300 MG, QD
     Route: 048
  15. KAYEXALATE [Concomitant]
     Dosage: 6.54 G, QD
     Route: 048
  16. LIPITOR [Concomitant]
     Dosage: 10 MG, QD
     Route: 048
  17. PURSENNID [Concomitant]
     Dosage: 48 MG, QD
     Route: 048
  18. CALCIUM CARBONATE [Concomitant]
     Dosage: 1500 MG, QD
     Route: 048

REACTIONS (3)
  - LOSS OF CONSCIOUSNESS [None]
  - SYNCOPE [None]
  - BLOOD PRESSURE DECREASED [None]
